FAERS Safety Report 12079497 (Version 6)
Quarter: 2016Q2

REPORT INFORMATION
  Report Type: Report from Study
  Country: US (occurrence: US)
  Receive Date: 20160216
  Receipt Date: 20160418
  Transmission Date: 20160815
  Serious: Yes (Death, Hospitalization)
  Sender: FDA-Public Use
  Company Number: US-PFIZER INC-2016076379

PATIENT
  Age: 10 Year
  Sex: Female
  Weight: 32 kg

DRUGS (14)
  1. LIDOCAINE-PRILOCAINE [Concomitant]
     Active Substance: LIDOCAINE\PRILOCAINE
     Indication: ANALGESIC THERAPY
     Dosage: [LIDOCAINE 2.5 %]/[PRILOCAINE 2.5%], 60 MIN BEFORE PROCEDURE
     Dates: start: 20160118
  2. CLONAZEPAM. [Concomitant]
     Active Substance: CLONAZEPAM
     Indication: SEIZURE
     Dosage: 0.125 MG, 2X/DAY
     Route: 048
     Dates: start: 20160118
  3. LEVOTHYROXINE. [Concomitant]
     Active Substance: LEVOTHYROXINE
     Indication: HYPOTHYROIDISM
     Dosage: 50 UG, DAILY
     Route: 048
     Dates: start: 20160118
  4. PALBOCICLIB [Suspect]
     Active Substance: PALBOCICLIB
     Indication: ANAPLASTIC ASTROCYTOMA
     Dosage: 75 MG/M2, DAILY
     Route: 048
     Dates: start: 20160115, end: 20160202
  5. ACETAMINOPHEN. [Concomitant]
     Active Substance: ACETAMINOPHEN
     Indication: HEADACHE
  6. MONTELUKAST [Concomitant]
     Active Substance: MONTELUKAST SODIUM
     Indication: HYPERSENSITIVITY
     Dosage: 4 MG, DAILY
     Route: 048
     Dates: start: 20160118
  7. ACETAMINOPHEN. [Concomitant]
     Active Substance: ACETAMINOPHEN
     Indication: PAIN
     Dosage: 500 MG, Q6H, AS NEEDED
     Route: 048
     Dates: start: 20160118
  8. DIVALPROEX [Concomitant]
     Active Substance: DIVALPROEX SODIUM
     Indication: SEIZURE
     Dosage: 750 MG, 2X/DAY
     Route: 048
     Dates: start: 20160118
  9. GRANISETRON [Concomitant]
     Active Substance: GRANISETRON
     Indication: NAUSEA
     Dosage: 0.5 MG, Q12H, AS NEEDED
     Route: 048
     Dates: start: 20160118
  10. LORAZEPAM. [Concomitant]
     Active Substance: LORAZEPAM
     Indication: NAUSEA
     Dosage: 0.5 MG, Q6H, AS NEEDED
     Route: 048
     Dates: start: 20160118
  11. TOPIRAMATE. [Concomitant]
     Active Substance: TOPIRAMATE
     Indication: SEIZURE
     Dosage: 275 MG, 2X/DAY
     Route: 048
     Dates: start: 20160118
  12. FAMOTIDINE. [Concomitant]
     Active Substance: FAMOTIDINE
     Indication: DUODENOGASTRIC REFLUX
     Dosage: 20 MG, 2X/DAY
     Route: 048
     Dates: start: 20160118
  13. MIDAZOLAM [Concomitant]
     Active Substance: MIDAZOLAM\MIDAZOLAM HYDROCHLORIDE
     Indication: SEIZURE
     Dosage: 2 MG/ML, AS NEEDED
     Route: 048
     Dates: start: 20160118
  14. LACOSAMIDE. [Concomitant]
     Active Substance: LACOSAMIDE
     Indication: SEIZURE
     Dosage: 250 MG, 2X/DAY
     Route: 048
     Dates: start: 20160118

REACTIONS (3)
  - Disease progression [Fatal]
  - Anaplastic astrocytoma [Fatal]
  - Dehydration [Recovered/Resolved]

NARRATIVE: CASE EVENT DATE: 20160202
